FAERS Safety Report 13382287 (Version 1)
Quarter: 2017Q1

REPORT INFORMATION
  Report Type: Spontaneous
  Country: FR (occurrence: FR)
  Receive Date: 20170329
  Receipt Date: 20170329
  Transmission Date: 20170429
  Serious: Yes (Hospitalization)
  Sender: FDA-Public Use
  Company Number: FR-PFIZER INC-2017126544

PATIENT
  Age: 59 Year
  Sex: Male

DRUGS (8)
  1. CYTARABINE SANDOZ [Suspect]
     Active Substance: CYTARABINE
     Indication: TRANSPLANT
     Dosage: 100 MG/M2 (197.3 MG), 2X/DAY (EVERY 12 HOURS)
     Route: 042
     Dates: start: 20161005, end: 20161008
  2. BICNU [Concomitant]
     Active Substance: CARMUSTINE
     Indication: TRANSPLANT
     Dosage: 300 MG/M2, UNK
     Route: 042
     Dates: start: 20161004
  3. MESNA. [Concomitant]
     Active Substance: MESNA
     Dosage: 8 MG/KG, UNK
     Dates: start: 20161005, end: 20161008
  4. CEFTRIAXONE. [Concomitant]
     Active Substance: CEFTRIAXONE
     Indication: PYREXIA
     Dosage: 1 G, UNK
     Dates: start: 20161006, end: 20161006
  5. TAZOCILLINE [Suspect]
     Active Substance: PIPERACILLIN SODIUM\TAZOBACTAM SODIUM
     Indication: PYREXIA
     Dosage: 4 G, 3X/DAY,4 G/500 MG
     Route: 042
     Dates: start: 20161007
  6. PRAZEPAM [Concomitant]
     Active Substance: PRAZEPAM
     Dosage: 10 MG, 3X/DAY
  7. ETOPOSIDE MYLAN [Suspect]
     Active Substance: ETOPOSIDE
     Indication: TRANSPLANT
     Dosage: 100 MG/M2 (197.3 MG), 2X/DAY (EVERY 12 HOURS)
     Route: 042
     Dates: start: 20161005, end: 20161008
  8. CYCLOPHOSPHAMIDE. [Concomitant]
     Active Substance: CYCLOPHOSPHAMIDE
     Dosage: 35 MG/KG  (2695 MG), UNK
     Dates: start: 20161005, end: 20161008

REACTIONS (3)
  - Diarrhoea [Recovered/Resolved]
  - Haemorrhoids [Recovered/Resolved]
  - Genital herpes simplex [Recovered/Resolved]

NARRATIVE: CASE EVENT DATE: 20161008
